FAERS Safety Report 10189827 (Version 1)
Quarter: 2014Q2

REPORT INFORMATION
  Report Type: Spontaneous
  Country: US (occurrence: US)
  Receive Date: 20140522
  Receipt Date: 20140522
  Transmission Date: 20141212
  Serious: Yes (Other)
  Sender: FDA-Public Use
  Company Number: US-SANOFI-AVENTIS-2013SA058770

PATIENT
  Age: 48 Year
  Sex: Female
  Weight: 95.25 kg

DRUGS (8)
  1. LANTUS SOLOSTAR [Suspect]
     Indication: TYPE 2 DIABETES MELLITUS
     Dosage: SEVERAL YEARS AGO DOSE:65 UNIT(S)
     Route: 051
  2. LANTUS SOLOSTAR [Suspect]
     Indication: TYPE 2 DIABETES MELLITUS
     Dosage: SEVERAL YEARS AGO DOSE:65 UNIT(S)
     Route: 051
  3. SOLOSTAR [Suspect]
     Indication: TYPE 2 DIABETES MELLITUS
     Dosage: SEVERAL YEARS AGO
  4. SOLOSTAR [Suspect]
     Indication: TYPE 2 DIABETES MELLITUS
     Dosage: SEVERAL YEARS AGO
  5. NOVOLOG [Concomitant]
  6. OMEPRAZOLE [Concomitant]
  7. CETIRIZINE [Concomitant]
  8. UNKNOWDRUG [Concomitant]

REACTIONS (3)
  - Retinopathy [Not Recovered/Not Resolved]
  - Weight increased [Not Recovered/Not Resolved]
  - Blood glucose increased [Not Recovered/Not Resolved]
